FAERS Safety Report 9444536 (Version 1)
Quarter: 2013Q3

REPORT INFORMATION
  Report Type: Spontaneous
  Country: US (occurrence: None)
  Receive Date: 20130806
  Receipt Date: 20130806
  Transmission Date: 20140515
  Serious: Yes (Life-Threatening, Other)
  Sender: FDA-Public Use
  Company Number: None

PATIENT
  Age: 66 Year
  Sex: Female
  Weight: 68.04 kg

DRUGS (1)
  1. ESCITALOPRAM [Suspect]
     Indication: DEPRESSION
     Dosage: ONE  ONCE DAILY  TAKEN BY MOUTH
     Route: 048
     Dates: start: 20130331, end: 20130630

REACTIONS (2)
  - Suicidal ideation [None]
  - Feelings of worthlessness [None]
